FAERS Safety Report 8390484-9 (Version None)
Quarter: 2012Q2

REPORT INFORMATION
  Report Type: 
  Country: None (occurrence: None)
  Receive Date: 20120529
  Receipt Date: 20120517
  Transmission Date: 20120825
  Serious: Yes (Other)
  Sender: FDA-Public Use
  Company Number: CA-JNJFOC-20120515385

PATIENT
  Sex: Male

DRUGS (4)
  1. IMURAN [Concomitant]
     Route: 048
  2. REMICADE [Suspect]
     Indication: CROHN'S DISEASE
     Route: 042
     Dates: start: 20050503
  3. ANTIBIOTICS [Concomitant]
     Route: 065
  4. FLAGYL [Concomitant]
     Route: 048

REACTIONS (1)
  - FISTULA [None]
